FAERS Safety Report 7302238-2 (Version None)
Quarter: 2011Q1

REPORT INFORMATION
  Report Type: 
  Country: None (occurrence: None)
  Receive Date: 20110218
  Receipt Date: 20110215
  Transmission Date: 20110831
  Serious: Yes (Death)
  Sender: FDA-Public Use
  Company Number: PHHY2011US12469

PATIENT
  Sex: Female

DRUGS (7)
  1. SYMBICORT [Concomitant]
     Dosage: 160-4.5, UNK
  2. ASPIRIN [Concomitant]
     Dosage: 81 MG, UNK
  3. AFINITOR [Suspect]
     Dosage: 10 MG, QD
     Route: 048
  4. TRIAMTERENE AND HYDROCHLOROTHIAZID [Concomitant]
     Dosage: 37.5-25, UNK
  5. ATENOLOL [Concomitant]
     Dosage: 50 MG, UNK
  6. GLYBURIDE [Concomitant]
     Dosage: 5 MG, UNK
  7. SYMBICORT [Concomitant]
     Dosage: 80-4.5, UNK

REACTIONS (1)
  - DEATH [None]
